FAERS Safety Report 4584745-9 (Version None)
Quarter: 2005Q1

REPORT INFORMATION
  Report Type: 
  Country: None (occurrence: None)
  Receive Date: 20050215
  Receipt Date: 20021112
  Transmission Date: 20050727
  Serious: No
  Sender: FDA-Public Use
  Company Number: C02-T-075

PATIENT
  Sex: Male

DRUGS (1)
  1. CARISOPRODOL [Suspect]

REACTIONS (1)
  - DRUG INEFFECTIVE [None]
